FAERS Safety Report 7197160-9 (Version None)
Quarter: 2010Q4

REPORT INFORMATION
  Report Type: 
  Country: None (occurrence: None)
  Receive Date: 20101224
  Receipt Date: 20101220
  Transmission Date: 20110411
  Serious: Yes (Death, Other)
  Sender: FDA-Public Use
  Company Number: PHHY2010CA83360

PATIENT
  Age: 9 Month
  Sex: Male

DRUGS (3)
  1. CYCLOSPORINE [Suspect]
     Indication: LIVER TRANSPLANT
  2. AZATHIOPRINE [Suspect]
     Indication: LIVER TRANSPLANT
  3. PREDNISONE [Suspect]
     Indication: LIVER TRANSPLANT

REACTIONS (35)
  - ARRHYTHMIA [None]
  - BACTERIAL SEPSIS [None]
  - BILE DUCT OBSTRUCTION [None]
  - BILIARY DILATATION [None]
  - BLOOD ALKALINE PHOSPHATASE INCREASED [None]
  - BLOOD BILIRUBIN ABNORMAL [None]
  - CARDIAC FAILURE [None]
  - CARDIOMYOPATHY [None]
  - CHOLANGITIS [None]
  - CHOLEDOCHOENTEROSTOMY [None]
  - CYTOMEGALOVIRUS INFECTION [None]
  - FIBROSIS [None]
  - GAMMA-GLUTAMYLTRANSFERASE INCREASED [None]
  - GLYCOGEN STORAGE DISEASE TYPE I [None]
  - GLYCOGEN STORAGE DISEASE TYPE IV [None]
  - HEPATIC ENZYME DECREASED [None]
  - LEFT VENTRICULAR HYPERTROPHY [None]
  - LIVER FUNCTION TEST ABNORMAL [None]
  - LIVER INJURY [None]
  - LIVER TRANSPLANT REJECTION [None]
  - MASTOID DISORDER [None]
  - MASTOIDECTOMY [None]
  - MYCOPLASMA INFECTION [None]
  - MYOCARDIAL FIBROSIS [None]
  - OEDEMA PERIPHERAL [None]
  - ORAL DISORDER [None]
  - OTORRHOEA [None]
  - PERICARDIAL EFFUSION [None]
  - PLEURAL EFFUSION [None]
  - PNEUMONIA [None]
  - POLYSEROSITIS [None]
  - PULMONARY OEDEMA [None]
  - RENAL TUBULAR NECROSIS [None]
  - SYNOVITIS [None]
  - ULTRASONIC ANGIOGRAM ABNORMAL [None]
